FAERS Safety Report 9409772 (Version 1)
Quarter: 2013Q2

REPORT INFORMATION
  Report Type: Spontaneous
  Country: US (occurrence: None)
  Receive Date: 20130607
  Receipt Date: 20130607
  Transmission Date: 20140414
  Serious: Yes (Other)
  Sender: FDA-Public Use
  Company Number: 1741328

PATIENT
  Age: 21 Year
  Sex: Male

DRUGS (1)
  1. EPINEPHRINE [Suspect]

REACTIONS (2)
  - Heart rate decreased [None]
  - Peripheral ischaemia [None]
